FAERS Safety Report 8530279-6 (Version None)
Quarter: 2012Q3

REPORT INFORMATION
  Report Type: 
  Country: None (occurrence: None)
  Receive Date: 20120723
  Receipt Date: 20120716
  Transmission Date: 20120928
  Serious: Yes (Hospitalization)
  Sender: FDA-Public Use
  Company Number: US-JNJFOC-20120300550

PATIENT
  Sex: Male
  Weight: 108.86 kg

DRUGS (7)
  1. REMICADE [Suspect]
     Indication: COLITIS ULCERATIVE
     Route: 042
  2. LORTAB [Concomitant]
     Indication: PAIN
     Route: 048
     Dates: start: 20060101
  3. BALSALAZINE DISODIUM [Concomitant]
     Indication: COLITIS ULCERATIVE
     Route: 065
  4. ALL OTHER THERAPEUTICS [Concomitant]
     Route: 065
  5. EFFIENT [Suspect]
     Indication: ANTICOAGULANT THERAPY
     Route: 048
     Dates: start: 20120101, end: 20120101
  6. ASPIRIN [Suspect]
     Indication: PRODUCT USED FOR UNKNOWN INDICATION
     Route: 065
     Dates: start: 20120101
  7. REMICADE [Suspect]
     Route: 042
     Dates: start: 20100901

REACTIONS (5)
  - HAEMATOCHEZIA [None]
  - ABNORMAL FAECES [None]
  - CORONARY ARTERY DISEASE [None]
  - INCREASED TENDENCY TO BRUISE [None]
  - FEELING ABNORMAL [None]
